FAERS Safety Report 7890855 (Version 3)
Quarter: 2012Q4

REPORT INFORMATION
  Report Type: 
  Country: US (occurrence: US)
  Receive Date: 20110408
  Receipt Date: 20120914
  Transmission Date: 20130627
  Serious: Yes (Hospitalization, Other)
  Sender: FDA-Public Use
  Company Number: US-ELI_LILLY_AND_COMPANY-US201104001177

PATIENT
  Age: 59 Year
  Sex: Male

DRUGS (16)
  1. HUMULIN NPH [Suspect]
     Indication: TYPE 1 DIABETES MELLITUS
     Dosage: 30 u, each morning
     Dates: start: 1980
  2. HUMULIN NPH [Suspect]
     Dosage: 8 u, other
     Dates: start: 1971
  3. HUMULIN NPH [Suspect]
     Dosage: 30 u, each morning
  4. HUMULIN NPH [Suspect]
     Dosage: 8 u, each evening
  5. HUMULIN REGULAR [Suspect]
     Indication: TYPE 1 DIABETES MELLITUS
     Dosage: 6 u, each morning
     Dates: start: 1980
  6. HUMULIN REGULAR [Suspect]
     Dosage: 8 u, other
     Dates: start: 1971
  7. HUMULIN REGULAR [Suspect]
     Dosage: 6 u, each morning
  8. HUMULIN REGULAR [Suspect]
     Dosage: 8 u, each evening
  9. ILETIN I [Suspect]
     Indication: TYPE 1 DIABETES MELLITUS
  10. ILETIN I [Suspect]
     Indication: TYPE 1 DIABETES MELLITUS
  11. HUMULIN LENTE [Suspect]
     Dosage: 30 u, each morning
     Dates: start: 1966, end: 1980
  12. HUMULIN LENTE [Suspect]
     Dosage: 8 u, each evening
     Dates: start: 1966, end: 1980
  13. HUMULIN ULTRALENTE [Suspect]
     Dosage: 6 u, each morning
     Dates: start: 1966, end: 1980
  14. HUMULIN ULTRALENTE [Suspect]
     Dosage: 8 u, each evening
     Dates: start: 1966, end: 1980
  15. NOVOLIN N [Concomitant]
     Indication: TYPE 1 DIABETES MELLITUS
  16. NOVOLIN R [Concomitant]
     Indication: TYPE 1 DIABETES MELLITUS

REACTIONS (24)
  - Convulsion [Recovered/Resolved]
  - Coma [Recovered/Resolved]
  - Mumps [Recovered/Resolved]
  - Road traffic accident [Recovered/Resolved]
  - Blood glucose increased [Unknown]
  - Blood glucose decreased [Unknown]
  - Somnolence [Recovered/Resolved]
  - Disorientation [Recovered/Resolved]
  - Urinary incontinence [Recovered/Resolved]
  - Influenza [Recovered/Resolved]
  - Incoherent [Recovered/Resolved]
  - Faecal incontinence [Recovered/Resolved]
  - Feeling abnormal [Recovered/Resolved]
  - Glycosylated haemoglobin increased [Unknown]
  - Incorrect dose administered [Recovered/Resolved]
  - Blood glucose abnormal [Unknown]
  - Wrong technique in drug usage process [Unknown]
  - Weight decreased [Recovered/Resolved]
  - Dizziness [Recovered/Resolved]
  - Injection site haemorrhage [Unknown]
  - Injection site pain [Unknown]
  - Injection site reaction [Unknown]
  - Injection site mass [Recovered/Resolved]
  - Injection site scar [Unknown]
